FAERS Safety Report 8153652-7 (Version None)
Quarter: 2012Q1

REPORT INFORMATION
  Report Type: 
  Country: None (occurrence: None)
  Receive Date: 20120221
  Receipt Date: 20120210
  Transmission Date: 20120608
  Serious: Yes (Disabling)
  Sender: FDA-Public Use
  Company Number: JP-JNJFOC-20110704525

PATIENT
  Age: 35 Year
  Sex: Female
  Weight: 52 kg

DRUGS (14)
  1. REMICADE [Suspect]
     Indication: ANKYLOSING SPONDYLITIS
     Dosage: TOTAL 6 INFUSIONS
     Route: 042
     Dates: start: 20110520
  2. REMICADE [Suspect]
     Route: 042
     Dates: start: 20101105
  3. REMICADE [Suspect]
     Route: 042
     Dates: start: 20110325
  4. PREDNISOLONE [Concomitant]
     Route: 048
     Dates: start: 20101203, end: 20110126
  5. REMICADE [Suspect]
     Route: 042
     Dates: start: 20110128
  6. REMICADE [Suspect]
     Route: 042
     Dates: start: 20101203
  7. ISONIAZID [Concomitant]
     Indication: ANTIBIOTIC PROPHYLAXIS
     Route: 065
     Dates: start: 20101019
  8. PREDNISOLONE [Concomitant]
     Route: 048
     Dates: end: 20101104
  9. MOHRUS TAPE [Concomitant]
     Indication: ANKYLOSING SPONDYLITIS
     Route: 003
  10. PREDNISOLONE [Concomitant]
     Indication: ANKYLOSING SPONDYLITIS
     Route: 048
     Dates: start: 20110127, end: 20110224
  11. PYRIDOXAL PHOSPHATE [Concomitant]
     Indication: PROPHYLAXIS
     Route: 048
     Dates: start: 20101019
  12. AZULFIDINE [Concomitant]
     Indication: ANKYLOSING SPONDYLITIS
     Route: 048
  13. REMICADE [Suspect]
     Route: 042
     Dates: start: 20101018
  14. PREDNISOLONE [Concomitant]
     Route: 048
     Dates: start: 20101105, end: 20101202

REACTIONS (1)
  - UVEITIS [None]
